FAERS Safety Report 6808136-2 (Version None)
Quarter: 2010Q2

REPORT INFORMATION
  Report Type: 
  Country: None (occurrence: None)
  Receive Date: 20100629
  Receipt Date: 20090424
  Transmission Date: 20101027
  Serious: Yes (Other)
  Sender: FDA-Public Use
  Company Number: US-PFIZER INC-2009171953

PATIENT
  Sex: Female
  Weight: 99.32 kg

DRUGS (6)
  1. REVATIO [Suspect]
     Indication: PULMONARY HYPERTENSION
     Dosage: 20 MG, 3X/DAY
     Route: 048
     Dates: start: 20081225
  2. SPIRONOLACTONE [Concomitant]
     Dosage: 25 MG, UNK
  3. METOPROLOL [Concomitant]
     Dosage: 25 MG, UNK
  4. WARFARIN [Concomitant]
     Dosage: 5 MG, UNK
  5. POTASSIUM [Concomitant]
     Dosage: 10 MG, UNK
  6. LASIX [Concomitant]
     Dosage: 40 MG, UNK

REACTIONS (4)
  - DRUG INEFFECTIVE [None]
  - DYSPNOEA [None]
  - HEPATIC ENZYME INCREASED [None]
  - MALAISE [None]
